FAERS Safety Report 6730489-4 (Version None)
Quarter: 2010Q2

REPORT INFORMATION
  Report Type: 
  Country: None (occurrence: None)
  Receive Date: 20100514
  Receipt Date: 20100430
  Transmission Date: 20101027
  Serious: Yes (Hospitalization)
  Sender: FDA-Public Use
  Company Number: 2010SP001362

PATIENT
  Age: 69 Year
  Sex: Female
  Weight: 109.9 kg

DRUGS (16)
  1. XOPENEX [Suspect]
     Dosage: INHALATION
     Route: 055
     Dates: start: 20100430
  2. AEROSOL [Concomitant]
  3. PROTONIX /01263201/ [Concomitant]
  4. PEPCID [Concomitant]
  5. PROVIGIL [Concomitant]
  6. ATROVENT [Concomitant]
  7. AMIODARONE [Concomitant]
  8. ASPIRIN [Concomitant]
  9. LIPITOR [Concomitant]
  10. ARANESP [Concomitant]
  11. BENADRYL [Concomitant]
  12. NITROGLYCERIN COMP. [Concomitant]
  13. SOLU-MEDROL [Concomitant]
  14. SITAGLIPTIN [Concomitant]
  15. COUMADIN [Concomitant]
  16. PREV MEDS [Concomitant]

REACTIONS (7)
  - AORTIC SURGERY [None]
  - ATRIAL SEPTAL DEFECT REPAIR [None]
  - CARDIAC OPERATION [None]
  - CORONARY ARTERY BYPASS [None]
  - MITRAL VALVE REPLACEMENT [None]
  - POSTOPERATIVE RENAL FAILURE [None]
  - RASH [None]
